APPROVED DRUG PRODUCT: BUPRENORPHINE
Active Ingredient: BUPRENORPHINE
Strength: 20MCG/HR
Dosage Form/Route: FILM, EXTENDED RELEASE;TRANSDERMAL
Application: A204937 | Product #004 | TE Code: AB
Applicant: WATSON LABORATORIES INC AN INDIRECT WHOLLY OWNED SUB OF TEVA PHARMACEUTICALS USA INC
Approved: Nov 20, 2018 | RLD: No | RS: No | Type: RX